FAERS Safety Report 11877837 (Version 2)
Quarter: 2016Q1

REPORT INFORMATION
  Report Type: Spontaneous
  Country: JP (occurrence: JP)
  Receive Date: 20151230
  Receipt Date: 20160101
  Transmission Date: 20160526
  Serious: Yes (Hospitalization)
  Sender: FDA-Public Use
  Company Number: JP-ROCHE-1686173

PATIENT
  Age: 52 Year
  Sex: Male
  Weight: 63 kg

DRUGS (1)
  1. XELODA [Suspect]
     Active Substance: CAPECITABINE
     Indication: RECTAL CANCER
     Dosage: DOSAGE IS UNCERTAIN.
     Route: 048

REACTIONS (5)
  - Stomatitis [Recovered/Resolved]
  - Oropharyngeal pain [Unknown]
  - Oral pain [Unknown]
  - White blood cell count decreased [Recovered/Resolved]
  - Hypoaesthesia oral [Unknown]
